FAERS Safety Report 25256595 (Version 1)
Quarter: 2025Q2

REPORT INFORMATION
  Report Type: Spontaneous
  Country: US (occurrence: US)
  Receive Date: 20250430
  Receipt Date: 20250430
  Transmission Date: 20250717
  Serious: Yes (Other)
  Sender: Otter
  Company Number: US-OTTER-US-2025AST000167

PATIENT
  Age: 79 Year
  Sex: Female

DRUGS (2)
  1. METHOTREXATE [Suspect]
     Active Substance: METHOTREXATE
     Indication: Rheumatoid arthritis
     Route: 065
  2. ADALIMUMAB [Suspect]
     Active Substance: ADALIMUMAB
     Indication: Rheumatoid arthritis
     Route: 065

REACTIONS (4)
  - Neutropenic colitis [Recovered/Resolved]
  - Pancytopenia [Recovered/Resolved]
  - Mouth ulceration [Recovered/Resolved]
  - Candida infection [Recovered/Resolved]
